FAERS Safety Report 25084715 (Version 2)
Quarter: 2025Q1

REPORT INFORMATION
  Report Type: Spontaneous
  Country: US (occurrence: US)
  Receive Date: 20250317
  Receipt Date: 20250318
  Transmission Date: 20250409
  Serious: Yes (Other)
  Sender: PFIZER
  Company Number: US-PFIZER INC-202500057338

PATIENT
  Age: 59 Year
  Sex: Female
  Weight: 68.04 kg

DRUGS (2)
  1. CORTEF [Suspect]
     Active Substance: HYDROCORTISONE
     Indication: Addison^s disease
     Dosage: 5MG TABLET, 10MG UPON AWAKENING AT 7AM, AT 10AM TAKES 1.5 TABLETS OR 7.5MG, AT 2PM TAKES 5MG
  2. HYDROCORTISONE [Suspect]
     Active Substance: HYDROCORTISONE
     Indication: Addison^s disease
     Dosage: 5MG TABLET, 10MG UPON AWAKENING AT 7AM, AT 10AM TAKES 1.5 TABLETS OR 7.5MG, AT 2PM TAKES 5MG
     Dates: start: 202501

REACTIONS (2)
  - Adrenocortical insufficiency acute [Unknown]
  - Stress [Unknown]
